FAERS Safety Report 9235716 (Version 1)
Quarter: 2013Q2

REPORT INFORMATION
  Report Type: Spontaneous
  Country: US (occurrence: None)
  Receive Date: 20130416
  Receipt Date: 20130416
  Transmission Date: 20140414
  Serious: Yes (Other)
  Sender: FDA-Public Use
  Company Number: None

PATIENT
  Age: 7 Year
  Sex: Male
  Weight: 25.4 kg

DRUGS (2)
  1. AZITHROMYCIN [Suspect]
     Indication: EAR INFECTION
     Route: 048
     Dates: start: 20130409, end: 20130414
  2. ZITHROMAX [Concomitant]

REACTIONS (4)
  - Dizziness [None]
  - Loss of consciousness [None]
  - Electrocardiogram abnormal [None]
  - Dyspnoea [None]
